FAERS Safety Report 4603771-4 (Version None)
Quarter: 2005Q1

REPORT INFORMATION
  Report Type: 
  Country: None (occurrence: None)
  Receive Date: 20050308
  Receipt Date: 20050223
  Transmission Date: 20050727
  Serious: Yes (Other)
  Sender: FDA-Public Use
  Company Number: 2005037106

PATIENT
  Age: 82 Year
  Sex: Female
  Weight: 72.5755 kg

DRUGS (4)
  1. CELEBREX [Suspect]
     Indication: ARTHRALGIA
     Dosage: 200 MG (200 MG, 1 IN 1 D)
  2. ASPIRIN [Concomitant]
  3. LABETALOL HCL [Concomitant]
  4. CANDESARTAN CILEXETIL (CANDESARTAN CILEXETIL) [Concomitant]

REACTIONS (5)
  - AORTIC VALVE REPAIR [None]
  - BLINDNESS UNILATERAL [None]
  - HEART VALVE REPLACEMENT [None]
  - HERPES ZOSTER [None]
  - VISION BLURRED [None]
